FAERS Safety Report 5662802-3 (Version None)
Quarter: 2008Q1

REPORT INFORMATION
  Report Type: 
  Country: None (occurrence: None)
  Receive Date: 20080311
  Receipt Date: 20080311
  Transmission Date: 20080703
  Serious: Yes (Other)
  Sender: FDA-Public Use
  Company Number: None

PATIENT
  Age: 43 Year
  Sex: Female
  Weight: 65.318 kg

DRUGS (1)
  1. CARBAMAZEPINE [Suspect]
     Indication: CONVULSION
     Dosage: ONCE IN AM TWICE @ PM, PO
     Route: 048
     Dates: start: 20070701, end: 20070701

REACTIONS (2)
  - CONVULSION [None]
  - POSTICTAL STATE [None]
